FAERS Safety Report 5579158-7 (Version None)
Quarter: 2007Q4

REPORT INFORMATION
  Report Type: 
  Country: None (occurrence: None)
  Receive Date: 20071227
  Receipt Date: 20071227
  Transmission Date: 20080405
  Serious: Yes (Other)
  Sender: FDA-Public Use
  Company Number: None

PATIENT
  Age: 51 Year
  Sex: Male
  Weight: 106.5953 kg

DRUGS (1)
  1. CHANTIX [Suspect]
     Dosage: 1MG TWICE PER DAY PO
     Route: 048
     Dates: start: 20071119, end: 20071221

REACTIONS (4)
  - AGGRESSION [None]
  - ALCOHOLIC HANGOVER [None]
  - SUICIDAL IDEATION [None]
  - THINKING ABNORMAL [None]
